FAERS Safety Report 8346359-4 (Version None)
Quarter: 2012Q2

REPORT INFORMATION
  Report Type: 
  Country: None (occurrence: None)
  Receive Date: 20120507
  Receipt Date: 20120423
  Transmission Date: 20120825
  Serious: Yes (Other)
  Sender: FDA-Public Use
  Company Number: 2012-0679

PATIENT
  Age: 21 Year
  Sex: Male
  Weight: 113.3 kg

DRUGS (1)
  1. SOMATULINE DEPOT [Suspect]
     Indication: ACROMEGALY
     Dosage: 60 MG (60 MG, 1 IN 28 D), SUBCUTANEOUS
     Route: 058
     Dates: start: 20120127, end: 20120224

REACTIONS (5)
  - DIARRHOEA [None]
  - VOMITING [None]
  - NAUSEA [None]
  - FLATULENCE [None]
  - JAW DISORDER [None]
